FAERS Safety Report 24970725 (Version 1)
Quarter: 2025Q1

REPORT INFORMATION
  Report Type: Spontaneous
  Country: US (occurrence: US)
  Receive Date: 20250214
  Receipt Date: 20250214
  Transmission Date: 20250409
  Serious: Yes (Hospitalization)
  Sender: ELI LILLY AND COMPANY
  Company Number: US-ELI_LILLY_AND_COMPANY-US202502008944

PATIENT
  Sex: Female

DRUGS (2)
  1. VERZENIO [Suspect]
     Active Substance: ABEMACICLIB
     Indication: Breast cancer metastatic
     Dosage: 100 MG, BID
     Route: 065
  2. VERZENIO [Suspect]
     Active Substance: ABEMACICLIB
     Dosage: 50 MG, BID
     Route: 065

REACTIONS (1)
  - Cardiac failure congestive [Not Recovered/Not Resolved]
